FAERS Safety Report 15863780 (Version 1)
Quarter: 2019Q1

REPORT INFORMATION
  Report Type: Spontaneous
  Country: US (occurrence: US)
  Receive Date: 20190124
  Receipt Date: 20190124
  Transmission Date: 20190417
  Serious: No
  Sender: FDA-Public Use
  Company Number: US-ENDO PHARMACEUTICALS INC-2018-015481

PATIENT
  Sex: Male
  Weight: 72.56 kg

DRUGS (5)
  1. VITAMIN B12 [Concomitant]
     Active Substance: CYANOCOBALAMIN
     Indication: VITAMIN SUPPLEMENTATION
  2. FORTESTA [Suspect]
     Active Substance: TESTOSTERONE
     Indication: BLOOD TESTOSTERONE DECREASED
     Dosage: 40 MG, 2 PUMPS ON EACH THIGH, DAILY
     Route: 061
     Dates: start: 2012, end: 2017
  3. FORTESTA [Suspect]
     Active Substance: TESTOSTERONE
     Dosage: 40 MG, 2 PUMPS TO LEFT THIGH AND 2 PUMPS TO RIGHT SHOULDER AND UPPER ARM, DAILY
     Route: 061
     Dates: start: 2017
  4. MULTIVITAMIN                       /00097801/ [Concomitant]
     Active Substance: VITAMINS
     Indication: VITAMIN SUPPLEMENTATION
  5. BIOTIN [Concomitant]
     Active Substance: BIOTIN
     Indication: VITAMIN SUPPLEMENTATION

REACTIONS (2)
  - Product administered at inappropriate site [Unknown]
  - Muscle spasms [Recovered/Resolved]

NARRATIVE: CASE EVENT DATE: 2015
